FAERS Safety Report 8997248 (Version 2)
Quarter: 2013Q1

REPORT INFORMATION
  Report Type: Spontaneous
  Country: US (occurrence: US)
  Receive Date: 20130104
  Receipt Date: 20130213
  Transmission Date: 20140127
  Serious: No
  Sender: FDA-Public Use
  Company Number: US-PFIZER INC-2012329710

PATIENT
  Age: 31 Year
  Sex: Female
  Weight: 66 kg

DRUGS (8)
  1. SOMAVERT [Suspect]
     Indication: ACROMEGALY
     Dosage: 10 MG,  1X/DAY
     Route: 058
     Dates: start: 20121220, end: 20121225
  2. SOMAVERT [Suspect]
     Dosage: 10 MG, ALTERNATE DAY (QOD)
  3. TOPAMAX [Concomitant]
     Dosage: UNK
  4. CYCLOBENZAPRINE [Concomitant]
     Dosage: UNK
  5. HYDROCODONE [Concomitant]
     Indication: PAIN
     Dosage: UNK
  6. RECLIPSEN [Concomitant]
     Indication: CONTRACEPTION
     Dosage: 0.15 - 30 MG, UNK
  7. TOPIRAMATE [Concomitant]
     Indication: HEADACHE
     Dosage: 25 MG, UNK
  8. AMITRIPTYLINE [Concomitant]
     Dosage: 10 MG, UNK

REACTIONS (1)
  - Headache [Recovered/Resolved]
